FAERS Safety Report 24303985 (Version 2)
Quarter: 2024Q3

REPORT INFORMATION
  Report Type: Spontaneous
  Country: TR (occurrence: TR)
  Receive Date: 20240910
  Receipt Date: 20240920
  Transmission Date: 20241016
  Serious: Yes (Other)
  Sender: TEVA
  Company Number: TR-TEVA-VS-3240662

PATIENT
  Sex: Female

DRUGS (1)
  1. FINGOLIMOD [Suspect]
     Active Substance: FINGOLIMOD
     Indication: Multiple sclerosis
     Route: 065
     Dates: start: 2019, end: 2023

REACTIONS (1)
  - Rebound effect [Unknown]

NARRATIVE: CASE EVENT DATE: 20230101
